FAERS Safety Report 8813048 (Version 1)
Quarter: 2012Q4

REPORT INFORMATION
  Report Type: 
  Country: US (occurrence: US)
  Receive Date: 20120927
  Receipt Date: 20120927
  Transmission Date: 20130627
  Serious: No
  Sender: FDA-Public Use
  Company Number: US-B.I. PHARMACEUTICALS,INC./RIDGEFIELD-2012-BP-23294BP

PATIENT
  Age: 72 None
  Sex: Female
  Weight: 127 kg

DRUGS (6)
  1. SPIRIVA [Suspect]
     Indication: DYSPNOEA
     Dosage: 18 mcg
     Route: 055
     Dates: start: 201207
  2. DURLERA [Concomitant]
     Route: 055
     Dates: start: 201207
  3. WARFARIN [Concomitant]
     Indication: MYOCARDIAL INFARCTION
     Dosage: 0.75 mg
     Route: 048
     Dates: start: 201112
  4. LIPITOR [Concomitant]
     Indication: MYOCARDIAL INFARCTION
     Dosage: 20 mg
     Route: 048
     Dates: start: 201111
  5. LASIX [Concomitant]
     Indication: DIURETIC THERAPY
     Dosage: 40 mg
     Route: 048
     Dates: start: 20120912
  6. COZAAR [Concomitant]
     Indication: HYPERTENSION
     Dosage: 100 mg
     Route: 048
     Dates: start: 201111

REACTIONS (7)
  - Oropharyngeal pain [Recovered/Resolved]
  - Cough [Recovered/Resolved]
  - Back pain [Not Recovered/Not Resolved]
  - Infection [Recovered/Resolved]
  - Scratch [Recovered/Resolved]
  - Product quality issue [Recovered/Resolved]
  - Fluid retention [Not Recovered/Not Resolved]
